FAERS Safety Report 5886783-2 (Version None)
Quarter: 2008Q3

REPORT INFORMATION
  Report Type: 
  Country: None (occurrence: None)
  Receive Date: 20080917
  Receipt Date: 20080909
  Transmission Date: 20090109
  Serious: Yes (Hospitalization)
  Sender: FDA-Public Use
  Company Number: US-ABBOTT-08P-163-0475324-00

PATIENT
  Sex: Female

DRUGS (5)
  1. HUMIRA [Suspect]
     Indication: ANKYLOSING SPONDYLITIS
     Route: 058
     Dates: start: 20070901, end: 20071201
  2. HUMIRA [Suspect]
     Route: 058
     Dates: start: 20080101
  3. ATENOLOL [Concomitant]
     Indication: BLOOD PRESSURE
  4. FENOFIBRATE [Concomitant]
     Indication: BLOOD CHOLESTEROL
  5. COMBAREN [Concomitant]
     Indication: ANKYLOSING SPONDYLITIS

REACTIONS (5)
  - CONTUSION [None]
  - FALL [None]
  - HIP ARTHROPLASTY [None]
  - SCIATICA [None]
  - SOFT TISSUE INJURY [None]
